FAERS Safety Report 7249279-1 (Version None)
Quarter: 2011Q1

REPORT INFORMATION
  Report Type: 
  Country: None (occurrence: None)
  Receive Date: 20110128
  Receipt Date: 20110119
  Transmission Date: 20110831
  Serious: Yes (Other)
  Sender: FDA-Public Use
  Company Number: NL-EISAI INC-E7389-00920-CLI-NL

PATIENT
  Sex: Female
  Weight: 49 kg

DRUGS (6)
  1. OXYCODON [Concomitant]
     Route: 048
     Dates: start: 20100209
  2. DICLOFENAC [Concomitant]
     Route: 048
  3. OXYCODONE HCL [Concomitant]
     Route: 048
  4. E7389 (BOLD) [Suspect]
     Route: 041
     Dates: start: 20100129, end: 20100416
  5. RIFAMPICIN [Concomitant]
     Route: 048
     Dates: start: 20100206, end: 20100217
  6. PANTOPRAZOL [Concomitant]
     Route: 048

REACTIONS (2)
  - WHITE BLOOD CELL COUNT DECREASED [None]
  - NEUTROPHIL COUNT DECREASED [None]
